FAERS Safety Report 18693897 (Version 1)
Quarter: 2020Q4

REPORT INFORMATION
  Report Type: Spontaneous
  Country: US (occurrence: US)
  Receive Date: 20201230
  Receipt Date: 20201230
  Transmission Date: 20210114
  Serious: Yes (Disabling, Other)
  Sender: FDA-Public Use
  Company Number: None

PATIENT
  Age: 74 Year
  Sex: Female
  Weight: 77.11 kg

DRUGS (17)
  1. AZOPF [Concomitant]
  2. TYLENOL ARTHRITIS PAIN [Concomitant]
     Active Substance: ACETAMINOPHEN
  3. MYLANTA [Concomitant]
     Active Substance: ALUMINUM HYDROXIDE\DIMETHICONE\MAGNESIUM HYDROXIDE
  4. LOSARTAN. [Concomitant]
     Active Substance: LOSARTAN
  5. ALBUTEROL SULFATE HFA [Concomitant]
     Active Substance: ALBUTEROL SULFATE
  6. D-3 [Concomitant]
     Active Substance: CHOLECALCIFEROL
  7. BUMETANIDE. [Concomitant]
     Active Substance: BUMETANIDE
  8. LUMIGAN [Concomitant]
     Active Substance: BIMATOPROST
  9. ASPIRIN EC 81MG TABLET [Concomitant]
     Active Substance: ASPIRIN
  10. ALFAGAN [Concomitant]
  11. METFORMIN [Concomitant]
     Active Substance: METFORMIN HYDROCHLORIDE
  12. AMLODIPINE [Concomitant]
     Active Substance: AMLODIPINE BESYLATE
  13. OMEPRAZOLE. [Concomitant]
     Active Substance: OMEPRAZOLE
  14. WIXELA INHUB [Suspect]
     Active Substance: FLUTICASONE PROPIONATE\SALMETEROL XINAFOATE
     Indication: PNEUMONITIS
     Dosage: ?          QUANTITY:250/50 ;  1 PUFF?
     Route: 055
     Dates: start: 20200410, end: 20200411
  15. ALLERGA 180 [Concomitant]
  16. CLONIDINE. [Concomitant]
     Active Substance: CLONIDINE
  17. VITAMIN B COMPLEX [Concomitant]
     Active Substance: CYANOCOBALAMIN\DEXPANTHENOL\NIACINAMIDE\PYRIDOXINE HYDROCHLORIDE\RIBOFLAVIN 5^-PHOSPHATE SODIUM\THIAMINE HYDROCHLORIDE\VITAMIN B COMPLEX

REACTIONS (3)
  - Chest discomfort [None]
  - Back pain [None]
  - Therapy cessation [None]

NARRATIVE: CASE EVENT DATE: 20200410
